FAERS Safety Report 21397227 (Version 2)
Quarter: 2022Q4

REPORT INFORMATION
  Report Type: Spontaneous
  Country: CO (occurrence: CO)
  Receive Date: 20220930
  Receipt Date: 20221112
  Transmission Date: 20230113
  Serious: Yes (Hospitalization, Other)
  Sender: FDA-Public Use
  Company Number: CO-AMGEN-COLSP2022163877

PATIENT
  Age: 30 Year
  Sex: Female

DRUGS (3)
  1. FILGRASTIM [Suspect]
     Active Substance: FILGRASTIM
     Indication: Lymphopenia
     Dosage: UNK
     Route: 065
     Dates: start: 20210706
  2. FILGRASTIM [Suspect]
     Active Substance: FILGRASTIM
     Indication: Neutropenia
  3. FILGRASTIM [Suspect]
     Active Substance: FILGRASTIM
     Indication: Off label use

REACTIONS (15)
  - Supraventricular tachycardia [Unknown]
  - Leukocytosis [Unknown]
  - Seizure [Unknown]
  - Myoclonus [Unknown]
  - Stenotrophomonas infection [Unknown]
  - Agranulocytosis [Unknown]
  - Tracheitis [Unknown]
  - Pulmonary embolism [Unknown]
  - Melaena [Unknown]
  - General physical health deterioration [Unknown]
  - Acute respiratory distress syndrome [Unknown]
  - Malabsorption [Unknown]
  - Pyrexia [Unknown]
  - Drug effective for unapproved indication [Unknown]
  - Off label use [Unknown]

NARRATIVE: CASE EVENT DATE: 20210101
